FAERS Safety Report 7904636-2 (Version None)
Quarter: 2011Q4

REPORT INFORMATION
  Report Type: 
  Country: None (occurrence: None)
  Receive Date: 20111109
  Receipt Date: 20111102
  Transmission Date: 20120403
  Serious: Yes (Life-Threatening, Other)
  Sender: FDA-Public Use
  Company Number: US-GLAXOSMITHKLINE-A0946599A

PATIENT
  Age: 71 Year
  Sex: Female
  Weight: 110 kg

DRUGS (14)
  1. ATENOLOL [Concomitant]
     Dosage: 50MG PER DAY
     Route: 048
  2. VERAMYST [Suspect]
     Indication: PRODUCT USED FOR UNKNOWN INDICATION
     Route: 045
     Dates: start: 20110921, end: 20110923
  3. PRILOSEC [Concomitant]
     Dosage: 20MG PER DAY
     Route: 048
  4. DOXEPIN [Concomitant]
     Dosage: 25MG AT NIGHT
     Route: 048
  5. MULTI-VITAMIN [Concomitant]
  6. AMOXICILLIN [Suspect]
     Indication: PRODUCT USED FOR UNKNOWN INDICATION
     Dosage: 500MG TWICE PER DAY
     Route: 065
     Dates: end: 20110923
  7. OSTEO BI-FLEX [Concomitant]
  8. ZYRTEC [Concomitant]
     Indication: MULTIPLE ALLERGIES
     Dosage: 10MG PER DAY
     Dates: start: 20050421
  9. QVAR 40 [Concomitant]
     Indication: ASTHMA
     Dosage: 1PUFF TWICE PER DAY
     Route: 055
  10. CALCIUM [Concomitant]
     Dosage: 500MG PER DAY
  11. PROAIR HFA [Concomitant]
     Indication: ASTHMA
     Route: 055
  12. FIBER LAXATIVE [Concomitant]
  13. VITAMIN E [Concomitant]
     Dosage: 400MG PER DAY
  14. ZYRTEC [Concomitant]
     Dosage: 5MG PER DAY
     Route: 048

REACTIONS (7)
  - DYSPNOEA [None]
  - CHOKING SENSATION [None]
  - EPISTAXIS [None]
  - MOUTH HAEMORRHAGE [None]
  - OROPHARYNGEAL DISCOMFORT [None]
  - ANGIOEDEMA [None]
  - OROPHARYNGEAL SWELLING [None]
